FAERS Safety Report 5815041-7 (Version None)
Quarter: 2008Q3

REPORT INFORMATION
  Report Type: 
  Country: None (occurrence: None)
  Receive Date: 20080718
  Receipt Date: 20080715
  Transmission Date: 20090109
  Serious: Yes (Hospitalization)
  Sender: FDA-Public Use
  Company Number: B0529195A

PATIENT
  Age: 65 Year
  Sex: Male

DRUGS (10)
  1. PAXIL [Suspect]
     Indication: DEPRESSION
     Dosage: 10MG PER DAY
     Route: 048
     Dates: end: 20080711
  2. VOGLIBOSE [Concomitant]
     Dosage: .1MG THREE TIMES PER DAY
     Route: 048
     Dates: start: 20080709
  3. UNSPECIFIED DRUG [Concomitant]
     Dosage: 100MG THREE TIMES PER DAY
     Route: 048
     Dates: start: 20080709
  4. UNSPECIFIED DRUG [Concomitant]
     Dosage: .2MG PER DAY
     Route: 048
     Dates: start: 20080709
  5. BUP-4 [Concomitant]
     Dosage: 20MG PER DAY
     Route: 048
     Dates: start: 20080709
  6. PEON [Concomitant]
     Dosage: 80MG THREE TIMES PER DAY
     Route: 048
     Dates: start: 20080709
  7. MECOBALAMIN [Concomitant]
     Dosage: 500MCG THREE TIMES PER DAY
     Route: 048
     Dates: start: 20080709
  8. SOLON [Concomitant]
     Dosage: .5G THREE TIMES PER DAY
     Route: 048
     Dates: start: 20080709
  9. SENNARIDE [Concomitant]
     Dosage: 24MG PER DAY
     Route: 048
     Dates: start: 20080709
  10. EURODIN [Concomitant]
     Dosage: 2MG PER DAY
     Route: 048
     Dates: start: 20080709

REACTIONS (6)
  - CHILLS [None]
  - COLD SWEAT [None]
  - DECREASED APPETITE [None]
  - HYPONATRAEMIA [None]
  - INAPPROPRIATE ANTIDIURETIC HORMONE SECRETION [None]
  - NIGHT SWEATS [None]
